FAERS Safety Report 7387313-9 (Version None)
Quarter: 2011Q1

REPORT INFORMATION
  Report Type: 
  Country: None (occurrence: None)
  Receive Date: 20110331
  Receipt Date: 20110317
  Transmission Date: 20110831
  Serious: Yes (Hospitalization)
  Sender: FDA-Public Use
  Company Number: CA-JNJFOC-20110308604

PATIENT
  Sex: Female
  Weight: 88.8 kg

DRUGS (7)
  1. PREDNISONE [Concomitant]
  2. POTASSIUM CHLORIDE [Concomitant]
  3. FLUOXETINE [Concomitant]
  4. PANTOPRAZOLE [Concomitant]
  5. REMICADE [Suspect]
     Indication: COLITIS ULCERATIVE
     Route: 042
  6. SUPEUDOL [Concomitant]
  7. MESALAMINE [Concomitant]

REACTIONS (1)
  - COLECTOMY [None]
